FAERS Safety Report 9735810 (Version 2)
Quarter: 2013Q4

REPORT INFORMATION
  Report Type: Spontaneous
  Country: US (occurrence: US)
  Receive Date: 20131206
  Receipt Date: 20131206
  Transmission Date: 20140711
  Serious: No
  Sender: FDA-Public Use
  Company Number: US-GILEAD-2009-0023000

PATIENT
  Sex: Female

DRUGS (13)
  1. LETAIRIS [Suspect]
     Indication: PULMONARY ARTERIAL HYPERTENSION
     Route: 048
     Dates: end: 20090904
  2. BYSTOLIC [Concomitant]
  3. ASPIRIN [Concomitant]
  4. PLAVIX [Concomitant]
  5. LOVAZA [Concomitant]
  6. FERROUS SULFATE [Concomitant]
     Indication: ANAEMIA
  7. ARICEPT [Concomitant]
  8. FORTEO [Concomitant]
  9. OSCAL [Concomitant]
  10. REQUIP [Concomitant]
  11. MILK OF MAGNESIA [Concomitant]
  12. BISA-LAX [Concomitant]
  13. MELATONIN [Concomitant]

REACTIONS (2)
  - Decreased appetite [Unknown]
  - Weight decreased [Unknown]
